FAERS Safety Report 6388196-6 (Version None)
Quarter: 2009Q4

REPORT INFORMATION
  Report Type: 
  Country: None (occurrence: None)
  Receive Date: 20091001
  Receipt Date: 20091001
  Transmission Date: 20100525
  Serious: No
  Sender: FDA-Public Use
  Company Number: None

PATIENT
  Sex: Female
  Weight: 113.3993 kg

DRUGS (1)
  1. AMILORIDE HYDROCHLORIDE [Suspect]
     Dosage: 5 MG ONE IN MORNING BY MOUTH
     Route: 048
     Dates: start: 20090831, end: 20090904

REACTIONS (4)
  - BACK PAIN [None]
  - CHEST PAIN [None]
  - JOINT SWELLING [None]
  - URINE OUTPUT DECREASED [None]
